FAERS Safety Report 7482778-6 (Version None)
Quarter: 2011Q2

REPORT INFORMATION
  Report Type: 
  Country: None (occurrence: None)
  Receive Date: 20110516
  Receipt Date: 20110511
  Transmission Date: 20111010
  Serious: Yes (Other)
  Sender: FDA-Public Use
  Company Number: US-PFIZER INC-2007036850

PATIENT
  Sex: Female

DRUGS (1)
  1. NEURONTIN [Suspect]
     Indication: DIABETIC NEUROPATHY
     Dosage: 300MG, 600MG
     Route: 048
     Dates: start: 19980101, end: 20090101

REACTIONS (8)
  - CARDIAC DISORDER [None]
  - AGGRESSION [None]
  - THINKING ABNORMAL [None]
  - DRUG INEFFECTIVE FOR UNAPPROVED INDICATION [None]
  - MENTAL DISORDER [None]
  - RENAL DISORDER [None]
  - SUICIDAL IDEATION [None]
  - DEPRESSION [None]
